FAERS Safety Report 19457172 (Version 3)
Quarter: 2022Q2

REPORT INFORMATION
  Report Type: Other
  Country: US (occurrence: US)
  Receive Date: 20210624
  Receipt Date: 20220513
  Transmission Date: 20220720
  Serious: No
  Sender: FDA-Public Use
  Company Number: US-DECIPHERA PHARMACEUTICALS LLC-2021US000241

PATIENT
  Sex: Female

DRUGS (4)
  1. QINLOCK [Suspect]
     Active Substance: RIPRETINIB
     Indication: Gastrointestinal stromal tumour
     Dosage: 150 MILLIGRAM, QD
     Route: 048
  2. QINLOCK [Suspect]
     Active Substance: RIPRETINIB
     Dosage: UNK
     Route: 048
     Dates: start: 2018
  3. QINLOCK [Suspect]
     Active Substance: RIPRETINIB
     Dosage: 200 MILLIGRAM, BID
     Route: 048
  4. QINLOCK [Suspect]
     Active Substance: RIPRETINIB
     Dosage: UNK

REACTIONS (2)
  - Product quality issue [Unknown]
  - Product prescribing error [Unknown]
